FAERS Safety Report 8050812-0 (Version None)
Quarter: 2012Q1

REPORT INFORMATION
  Report Type: 
  Country: None (occurrence: None)
  Receive Date: 20120117
  Receipt Date: 20120112
  Transmission Date: 20120608
  Serious: Yes (Other)
  Sender: FDA-Public Use
  Company Number: BR-PFIZER INC-2012010513

PATIENT
  Sex: Male

DRUGS (1)
  1. VARENICLINE TARTRATE [Suspect]
     Indication: SMOKING CESSATION THERAPY
     Dosage: UNK
     Route: 048
     Dates: start: 20111212, end: 20120112

REACTIONS (5)
  - FEELING ABNORMAL [None]
  - HEAD DISCOMFORT [None]
  - APATHY [None]
  - SOCIAL AVOIDANT BEHAVIOUR [None]
  - HYPOTENSION [None]
